FAERS Safety Report 13297586 (Version 1)
Quarter: 2017Q1

REPORT INFORMATION
  Report Type: Spontaneous
  Country: US (occurrence: US)
  Receive Date: 20170303
  Receipt Date: 20170303
  Transmission Date: 20170428
  Serious: Yes (Disabling)
  Sender: FDA-Public Use
  Company Number: None

PATIENT
  Age: 65 Year
  Sex: Female
  Weight: 89.55 kg

DRUGS (3)
  1. VITAMIN D [Concomitant]
     Active Substance: CHOLECALCIFEROL
  2. RESTASIS [Suspect]
     Active Substance: CYCLOSPORINE
     Indication: DRY EYE
     Dosage: 30 VIALS (0.4 ML); EVERY 12 HOURS OPHTHALMIC?
     Route: 047
     Dates: start: 20080430, end: 20170215
  3. FISH OIL [Concomitant]
     Active Substance: FISH OIL

REACTIONS (7)
  - Glossodynia [None]
  - Instillation site pain [None]
  - Instillation site dryness [None]
  - Dysphagia [None]
  - Dysgeusia [None]
  - Dry mouth [None]
  - Throat irritation [None]

NARRATIVE: CASE EVENT DATE: 20151101
